FAERS Safety Report 7581477-X (Version None)
Quarter: 2011Q2

REPORT INFORMATION
  Report Type: 
  Country: None (occurrence: None)
  Receive Date: 20110629
  Receipt Date: 20110620
  Transmission Date: 20111010
  Serious: Yes (Other)
  Sender: FDA-Public Use
  Company Number: PHHY2011US54825

PATIENT
  Sex: Female

DRUGS (11)
  1. VITAMIN D [Concomitant]
  2. LORAZEPAM [Concomitant]
  3. FOLIC ACID [Concomitant]
  4. MULTI-VITAMINS [Concomitant]
  5. WELLBUTRIN [Concomitant]
  6. FISH OIL [Concomitant]
  7. BONIVA [Concomitant]
  8. CALCIUM CARBONATE [Concomitant]
  9. NAPROSYN [Concomitant]
  10. DITROPAN [Concomitant]
  11. GILENYA [Suspect]
     Indication: MULTIPLE SCLEROSIS
     Dosage: 0.5 MG, QD
     Route: 048
     Dates: start: 20110523

REACTIONS (6)
  - ASTHENIA [None]
  - FALL [None]
  - FEELING ABNORMAL [None]
  - ACCIDENTAL OVERDOSE [None]
  - BALANCE DISORDER [None]
  - SENSATION OF HEAVINESS [None]
